FAERS Safety Report 4895443-6 (Version None)
Quarter: 2006Q1

REPORT INFORMATION
  Report Type: 
  Country: None (occurrence: None)
  Receive Date: 20060130
  Receipt Date: 20060125
  Transmission Date: 20060701
  Serious: Yes (Disabling)
  Sender: FDA-Public Use
  Company Number: US-MERCK-0601USA03069

PATIENT
  Age: 53 Year
  Sex: Male

DRUGS (1)
  1. VIOXX [Suspect]
     Route: 048
     Dates: start: 20020401, end: 20020601

REACTIONS (2)
  - ACUTE MYOCARDIAL INFARCTION [None]
  - INJURY [None]
